FAERS Safety Report 24691518 (Version 1)
Quarter: 2024Q4

REPORT INFORMATION
  Report Type: Spontaneous
  Country: JP (occurrence: JP)
  Receive Date: 20241203
  Receipt Date: 20241203
  Transmission Date: 20250115
  Serious: Yes (Death, Life-Threatening, Other)
  Sender: PFIZER
  Company Number: JP-PFIZER INC-202400312497

PATIENT
  Age: 75 Year
  Sex: Male
  Weight: 52 kg

DRUGS (6)
  1. SOLU-MEDROL [Suspect]
     Active Substance: METHYLPREDNISOLONE SODIUM SUCCINATE
     Indication: Interstitial lung disease
     Dosage: 1000 MG
     Dates: start: 20240509
  2. SOLU-MEDROL [Suspect]
     Active Substance: METHYLPREDNISOLONE SODIUM SUCCINATE
     Dosage: 1000 MG
     Dates: start: 20240528
  3. PIPERACILLIN SODIUM\TAZOBACTAM SODIUM [Suspect]
     Active Substance: PIPERACILLIN SODIUM\TAZOBACTAM SODIUM
     Indication: Interstitial lung disease
     Dosage: 4.5 G, 3X/DAY
     Dates: start: 20240509
  4. PREDNISOLONE [Suspect]
     Active Substance: PREDNISOLONE
     Indication: Interstitial lung disease
     Dosage: 50 MG
     Route: 048
     Dates: start: 202405
  5. CARBOPLATIN [Concomitant]
     Active Substance: CARBOPLATIN
     Dosage: UNK
  6. LAGEVRIO [Concomitant]
     Active Substance: MOLNUPIRAVIR
     Indication: COVID-19
     Dosage: UNK
     Dates: start: 202405

REACTIONS (1)
  - Drug ineffective [Fatal]

NARRATIVE: CASE EVENT DATE: 20240101
